FAERS Safety Report 10037259 (Version 1)
Quarter: 2014Q1

REPORT INFORMATION
  Report Type: Spontaneous
  Country: US (occurrence: US)
  Receive Date: 20140326
  Receipt Date: 20140326
  Transmission Date: 20141002
  Serious: No
  Sender: FDA-Public Use
  Company Number: US-BAYER-2014-045807

PATIENT
  Sex: Female

DRUGS (3)
  1. YAZ [Suspect]
     Indication: ACNE
  2. YASMIN [Suspect]
     Indication: ACNE
  3. OCELLA [Suspect]
     Indication: ACNE

REACTIONS (3)
  - Injury [None]
  - Pain [None]
  - Pain [None]
